FAERS Safety Report 4704748-0 (Version None)
Quarter: 2005Q2

REPORT INFORMATION
  Report Type: 
  Country: None (occurrence: None)
  Receive Date: 20050630
  Receipt Date: 20050614
  Transmission Date: 20051028
  Serious: Yes (Other)
  Sender: FDA-Public Use
  Company Number: US-2005-011019

PATIENT
  Age: 45 Year
  Sex: Female

DRUGS (15)
  1. FLUDARA [Suspect]
     Indication: NON-HODGKIN'S LYMPHOMA STAGE IV
     Dosage: 25 MG/M2, D1-3 (R-FND), INTRAVENOUS
     Route: 042
  2. MITOXANTRONE [Suspect]
     Indication: NON-HODGKIN'S LYMPHOMA STAGE IV
     Dosage: SEE IMAGE, INTRAVENOUS
     Route: 042
  3. DEXAMETHASONE [Suspect]
     Indication: NON-HODGKIN'S LYMPHOMA STAGE IV
     Dosage: SEE IMAGE, ORAL
     Route: 048
  4. RITUXIMAB (RITUXIMAB) [Suspect]
     Indication: NON-HODGKIN'S LYMPHOMA STAGE IV
     Dosage: SEE IMAGE, INTRAVENOUS
     Route: 042
  5. INTERFERON ALFA-2B (INTERFERON ALFA-2B) [Suspect]
     Indication: NON-HODGKIN'S LYMPHOMA STAGE IV
     Dosage: 3 MIU/M2, 1XDAY D2 TO D14, SUBCUTANEOUS
     Route: 058
  6. CYCLOPHOSPHAMIDE [Suspect]
     Indication: NON-HODGKIN'S LYMPHOMA STAGE IV
     Dosage: 3-4 COURSE (ATT), INTRAVENOUS
     Route: 042
  7. DOXORUBICIN (DOXORUBICIN) [Suspect]
     Indication: NON-HODGKIN'S LYMPHOMA STAGE IV
     Dosage: 3-4 COURSE ( ATT), INTRAVENOUS
     Route: 042
  8. VINCRISTINE [Suspect]
     Indication: NON-HODGKIN'S LYMPHOMA STAGE IV
     Dosage: 3-4 COURSES (ATT), INTRAVENOUS
     Route: 042
  9. BLEOMYCN (BLEOMYCIN) [Suspect]
     Indication: NON-HODGKIN'S LYMPHOMA STAGE IV
     Dosage: 3-4 COURSES (ATT), INTRAVENOUS
     Route: 042
  10. ETOPOSIDE [Suspect]
     Indication: NON-HODGKIN'S LYMPHOMA STAGE IV
     Dosage: 3-4 COURSES (ATT), INTRAVENOUS
     Route: 042
  11. METHYLPREDNISOLONE [Suspect]
     Indication: NON-HODGKIN'S LYMPHOMA STAGE IV
     Dosage: 3-4 COURSES (ATT), INTRAVENOUS
     Route: 042
  12. CYTARABINE [Suspect]
     Indication: NON-HODGKIN'S LYMPHOMA STAGE IV
     Dosage: 3-4 COURSES (ATT)
  13. CISPLATIN [Suspect]
     Indication: NON-HODGKIN'S LYMPHOMA STAGE IV
  14. PREDNISONE [Suspect]
     Indication: NON-HODGKIN'S LYMPHOMA STAGE IV
     Dosage: 3-4 COURSES (ATT), INTRAVENOUS
     Route: 042
  15. PROCARBAZINE (PROCARBAZINE) [Suspect]
     Indication: NON-HODGKIN'S LYMPHOMA STAGE IV
     Dosage: 3-4 COURSES (ATT), INTRAVENOUS
     Route: 042

REACTIONS (3)
  - BONE MARROW TRANSPLANT [None]
  - MYELODYSPLASTIC SYNDROME [None]
  - REFRACTORY ANAEMIA WITH AN EXCESS OF BLASTS [None]
